FAERS Safety Report 7224545-4 (Version None)
Quarter: 2011Q1

REPORT INFORMATION
  Report Type: 
  Country: None (occurrence: None)
  Receive Date: 20110113
  Receipt Date: 20101231
  Transmission Date: 20110831
  Serious: No
  Sender: FDA-Public Use
  Company Number: US-B.I. PHARMACEUTICALS,INC./RIDGEFIELD-2011-BP-00395BP

PATIENT
  Sex: Female

DRUGS (1)
  1. ZANTAC 75 [Suspect]
     Dosage: 150 MG

REACTIONS (3)
  - VULVOVAGINAL DISCOMFORT [None]
  - VISUAL IMPAIRMENT [None]
  - DYSPNOEA [None]
